FAERS Safety Report 5799386-5 (Version None)
Quarter: 2008Q3

REPORT INFORMATION
  Report Type: 
  Country: None (occurrence: None)
  Receive Date: 20080703
  Receipt Date: 20080624
  Transmission Date: 20090109
  Serious: Yes (Hospitalization)
  Sender: FDA-Public Use
  Company Number: GB-PFIZER INC-2008053564

PATIENT
  Sex: Male
  Weight: 44 kg

DRUGS (4)
  1. RIFABUTIN [Suspect]
     Dates: start: 20080428, end: 20080529
  2. ALL OTHER THERAPEUTIC PRODUCTS [Concomitant]
  3. CLARITHROMYCIN [Concomitant]
  4. ETHAMBUTOL HYDROCHLORIDE [Concomitant]

REACTIONS (1)
  - RENAL IMPAIRMENT [None]
